FAERS Safety Report 25256660 (Version 1)
Quarter: 2025Q2

REPORT INFORMATION
  Report Type: Spontaneous
  Country: US (occurrence: US)
  Receive Date: 20250430
  Receipt Date: 20250430
  Transmission Date: 20250717
  Serious: Yes (Other)
  Sender: INFORLIFE
  Company Number: US-INFO-20250101

PATIENT
  Age: 70 Year
  Sex: Female

DRUGS (1)
  1. ZOLEDRONIC ACID [Suspect]
     Active Substance: ZOLEDRONIC ACID

REACTIONS (2)
  - Arthralgia [Unknown]
  - Peripheral swelling [Recovering/Resolving]
